FAERS Safety Report 8109930-0 (Version None)
Quarter: 2012Q1

REPORT INFORMATION
  Report Type: 
  Country: None (occurrence: None)
  Receive Date: 20120202
  Receipt Date: 20120120
  Transmission Date: 20120608
  Serious: Yes (Other)
  Sender: FDA-Public Use
  Company Number: JP-PFIZER INC-2012023254

PATIENT
  Age: 65 Year
  Sex: Male

DRUGS (6)
  1. ARGATROBAN [Suspect]
     Indication: THROMBOTIC CEREBRAL INFARCTION
     Dosage: UNK
     Route: 041
     Dates: start: 20110114, end: 20110116
  2. GRTPA [Suspect]
     Indication: THROMBOTIC CEREBRAL INFARCTION
     Dosage: 41.2 ML, 1X/DAY
     Route: 041
     Dates: start: 20110113, end: 20110113
  3. PLETAL [Suspect]
     Indication: THROMBOTIC CEREBRAL INFARCTION
     Dosage: UNK
     Route: 048
     Dates: start: 20110117
  4. OMEPRAZOLE [Suspect]
     Dosage: UNK
  5. HEPARIN SODIUM [Suspect]
     Indication: THROMBOTIC CEREBRAL INFARCTION
     Dosage: UNK
     Route: 041
     Dates: start: 20110116, end: 20110124
  6. EDARAVONE [Suspect]
     Indication: THROMBOTIC CEREBRAL INFARCTION
     Dosage: 30 MG, 2X/DAY
     Route: 041
     Dates: start: 20110113, end: 20110124

REACTIONS (1)
  - HEPATIC FUNCTION ABNORMAL [None]
